FAERS Safety Report 6542166-3 (Version None)
Quarter: 2010Q1

REPORT INFORMATION
  Report Type: 
  Country: None (occurrence: None)
  Receive Date: 20100119
  Receipt Date: 20100112
  Transmission Date: 20100710
  Serious: Yes (Hospitalization, Other)
  Sender: FDA-Public Use
  Company Number: NL-B.I. PHARMACEUTICALS,INC./RIDGEFIELD-2010-NL-00013NL

PATIENT
  Sex: Male

DRUGS (6)
  1. PERSANTIN [Suspect]
     Dosage: 400 MG
  2. PERSANTIN [Suspect]
     Dosage: 200 MG
     Dates: end: 20100101
  3. PERSANTIN [Suspect]
     Dosage: 400 MG
     Dates: start: 20100101
  4. ACETYLSALICYLIC ACID [Concomitant]
  5. ATENOLOL [Concomitant]
  6. SIMVASTATIN [Concomitant]

REACTIONS (5)
  - ARTHRALGIA [None]
  - BACK PAIN [None]
  - FALL [None]
  - MEDICATION ERROR [None]
  - TRANSIENT ISCHAEMIC ATTACK [None]
